FAERS Safety Report 7075166-8 (Version None)
Quarter: 2010Q4

REPORT INFORMATION
  Report Type: 
  Country: None (occurrence: None)
  Receive Date: 20101029
  Receipt Date: 20100602
  Transmission Date: 20110411
  Serious: No
  Sender: FDA-Public Use
  Company Number: US-WYE-H15575510

PATIENT
  Age: 80 Year
  Sex: Female
  Weight: 86.71 kg

DRUGS (6)
  1. ADVIL PM [Suspect]
     Indication: ARTHRITIS
     Dosage: 1 CAPLET AS NEEDED
     Route: 048
     Dates: start: 20100501, end: 20100601
  2. ADVIL PM [Suspect]
     Indication: INSOMNIA
  3. GLUCOSAMINE [Concomitant]
  4. CALCIUM [Concomitant]
  5. ADVAIR DISKUS 100/50 [Concomitant]
  6. BIOTIN [Concomitant]

REACTIONS (1)
  - SOMNOLENCE [None]
